FAERS Safety Report 9931411 (Version 1)
Quarter: 2014Q1

REPORT INFORMATION
  Report Type: Spontaneous
  Country: US (occurrence: US)
  Receive Date: 20140228
  Receipt Date: 20140228
  Transmission Date: 20141002
  Serious: Yes (Other)
  Sender: FDA-Public Use
  Company Number: US-AMGEN-USASP2014013280

PATIENT
  Age: 74 Year
  Sex: Female

DRUGS (12)
  1. PROLIA [Suspect]
     Indication: OSTEOPOROSIS
     Dosage: UNK
     Route: 065
  2. OMEPRAZOLE [Concomitant]
     Dosage: UNK UNK, QD
  3. SIMVASTATIN [Concomitant]
     Dosage: 20 MG QD
  4. LISINOPRIL [Concomitant]
     Dosage: 5 MG, BID
  5. LASIX                              /00032601/ [Concomitant]
     Dosage: 40 MG, TID
  6. ALLOPURINOL [Concomitant]
     Dosage: 100 MG, BID
  7. KLOR CON [Concomitant]
     Dosage: 10 MEQ, QD
  8. ACTOS [Concomitant]
     Dosage: 30 MG, QD
  9. ONE-A-DAY                          /00156401/ [Concomitant]
  10. LUTEIN                             /01638501/ [Concomitant]
     Dosage: 20 MG, QD
  11. FLAX SEED OIL [Concomitant]
  12. CALCIUM [Concomitant]

REACTIONS (2)
  - Body height decreased [Not Recovered/Not Resolved]
  - Platelet count abnormal [Unknown]
